FAERS Safety Report 5677626-0 (Version None)
Quarter: 2008Q1

REPORT INFORMATION
  Report Type: 
  Country: None (occurrence: None)
  Receive Date: 20080324
  Receipt Date: 20080319
  Transmission Date: 20080703
  Serious: Yes (Hospitalization)
  Sender: FDA-Public Use
  Company Number: FR-WYE-G01275608

PATIENT
  Age: 60 Year
  Sex: Male

DRUGS (1)
  1. EFFEXOR [Suspect]
     Indication: DEPRESSION
     Dosage: 75 MG TOTAL DAILY
     Route: 048
     Dates: start: 20020101

REACTIONS (4)
  - ALPHA 2 GLOBULIN INCREASED [None]
  - INFLAMMATION [None]
  - PLATELET COUNT INCREASED [None]
  - RETROPERITONEAL FIBROSIS [None]
